FAERS Safety Report 5553950-7 (Version None)
Quarter: 2007Q4

REPORT INFORMATION
  Report Type: 
  Country: None (occurrence: None)
  Receive Date: 20071213
  Receipt Date: 20071203
  Transmission Date: 20080405
  Serious: Yes (Hospitalization)
  Sender: FDA-Public Use
  Company Number: FR-ELI_LILLY_AND_COMPANY-FR200712001094

PATIENT
  Age: 49 Year
  Sex: Female

DRUGS (7)
  1. FORTEO [Suspect]
     Indication: OSTEOPOROSIS
     Dosage: 20 UG, DAILY (1/D)
     Route: 058
     Dates: start: 20071011
  2. CERTICAN [Concomitant]
     Indication: IMMUNOSUPPRESSANT DRUG THERAPY
     Dosage: 2 D/F, DAILY (1/D)
     Route: 048
     Dates: start: 20071013, end: 20071124
  3. CORTANCYL [Concomitant]
     Dosage: 7.5 MG, DAILY (1/D)
  4. LEVOTHYROX [Concomitant]
     Dosage: 100 UG, DAILY (1/D)
     Route: 048
  5. LASIX [Concomitant]
  6. PREVISCAN [Concomitant]
  7. POTASSIUM CHLORIDE [Concomitant]

REACTIONS (4)
  - COUGH [None]
  - DYSPNOEA [None]
  - LUNG DISORDER [None]
  - PYREXIA [None]
